FAERS Safety Report 4996964-8 (Version None)
Quarter: 2006Q2

REPORT INFORMATION
  Report Type: 
  Country: None (occurrence: None)
  Receive Date: 20060509
  Receipt Date: 20060427
  Transmission Date: 20061013
  Serious: Yes (Death)
  Sender: FDA-Public Use
  Company Number: FI-ROCHE-446259

PATIENT
  Age: 62 Year
  Sex: Male

DRUGS (5)
  1. CYMEVENE [Suspect]
     Route: 042
     Dates: start: 20051008, end: 20051021
  2. KLEXANE [Concomitant]
  3. DIFLUCAN [Concomitant]
  4. ISMOX [Concomitant]
  5. SPESICOR [Concomitant]

REACTIONS (8)
  - AORTIC VALVE SCLEROSIS [None]
  - AORTIC VALVE STENOSIS [None]
  - BONE MARROW FAILURE [None]
  - CORONARY ARTERY DISEASE [None]
  - HYPOPLASTIC ANAEMIA [None]
  - LEUKOPENIA [None]
  - NEUTROPENIA [None]
  - SEPTIC SHOCK [None]
